FAERS Safety Report 5024370-9 (Version None)
Quarter: 2006Q2

REPORT INFORMATION
  Report Type: 
  Country: None (occurrence: None)
  Receive Date: 20060608
  Receipt Date: 20060608
  Transmission Date: 20061013
  Serious: Yes (Other)
  Sender: FDA-Public Use
  Company Number: None

PATIENT
  Age: 23 Year
  Sex: Male
  Weight: 186 kg

DRUGS (1)
  1. POLYGAM [Suspect]
     Indication: POLYNEUROPATHY
     Dosage: 1 GRAM/KG ONCE IV DRIP
     Route: 041
     Dates: start: 20060325, end: 20060325

REACTIONS (6)
  - COOMBS DIRECT TEST POSITIVE [None]
  - DIZZINESS [None]
  - DYSPNOEA [None]
  - FATIGUE [None]
  - HAEMOGLOBIN DECREASED [None]
  - HAEMOLYTIC ANAEMIA [None]
